FAERS Safety Report 21044386 (Version 1)
Quarter: 2022Q3

REPORT INFORMATION
  Report Type: Spontaneous
  Country: None (occurrence: CA)
  Receive Date: 20220705
  Receipt Date: 20220705
  Transmission Date: 20221027
  Serious: Yes (Death, Life-Threatening, Hospitalization)
  Sender: FDA-Public Use
  Company Number: CA-B.Braun Medical Inc.-2130548

PATIENT
  Age: 80 Year
  Sex: Female
  Weight: 61 kg

DRUGS (25)
  1. HEPARIN SODIUM IN DEXTROSE [Suspect]
     Active Substance: HEPARIN SODIUM
  2. ACETAMINOPHEN [Concomitant]
     Active Substance: ACETAMINOPHEN
  3. ALLOPURINOL [Concomitant]
     Active Substance: ALLOPURINOL
  4. AMIODARONE [Concomitant]
     Active Substance: AMIODARONE
  5. AMLODIPINE [Concomitant]
     Active Substance: AMLODIPINE BESYLATE
  6. ARGATROBAN [Concomitant]
     Active Substance: ARGATROBAN
  7. CANDESARTAN [Concomitant]
     Active Substance: CANDESARTAN
  8. DIGOXIN [Concomitant]
     Active Substance: DIGOXIN
  9. DIMENHYDRINATE [Concomitant]
     Active Substance: DIMENHYDRINATE
  10. FENTANYL [Concomitant]
     Active Substance: FENTANYL
  11. DAPAGLIFLOZIN [Suspect]
     Active Substance: DAPAGLIFLOZIN
  12. FUROSEMIDE [Concomitant]
     Active Substance: FUROSEMIDE
  13. INSULIN NOS [Concomitant]
     Active Substance: INSULIN NOS
  14. LEVOFLOXACIN [Concomitant]
     Active Substance: LEVOFLOXACIN
  15. METFORMIN [Concomitant]
     Active Substance: METFORMIN HYDROCHLORIDE
  16. METOPROLOL [Concomitant]
     Active Substance: METOPROLOL
  17. MIDAZOLAM [Concomitant]
     Active Substance: MIDAZOLAM
  18. MORPHINE SULFATE [Concomitant]
     Active Substance: MORPHINE SULFATE
  19. ONDANSETRON [Concomitant]
     Active Substance: ONDANSETRON
  20. PANTOPRAZOLE SODIUM [Concomitant]
     Active Substance: PANTOPRAZOLE SODIUM
  21. UNSPECIFIED INGREDIENT [Concomitant]
     Active Substance: UNSPECIFIED INGREDIENT
  22. PIPERACILLIN SODIUM\TAZOBACTAM SODIUM [Concomitant]
     Active Substance: PIPERACILLIN SODIUM\TAZOBACTAM SODIUM
  23. QUETIAPINE [Concomitant]
     Active Substance: QUETIAPINE
  24. VITAMIN K [Concomitant]
     Active Substance: PHYTONADIONE
  25. WARFARIN SODIUM [Concomitant]
     Active Substance: WARFARIN SODIUM

REACTIONS (3)
  - Cerebral haemorrhage [Fatal]
  - General physical health deterioration [Fatal]
  - Intracranial pressure increased [Fatal]
